FAERS Safety Report 6683915-3 (Version None)
Quarter: 2010Q2

REPORT INFORMATION
  Report Type: 
  Country: None (occurrence: None)
  Receive Date: 20100416
  Receipt Date: 20100408
  Transmission Date: 20101027
  Serious: Yes (Other)
  Sender: FDA-Public Use
  Company Number: US-PFIZER INC-2010039143

PATIENT
  Sex: Female
  Weight: 83.9 kg

DRUGS (2)
  1. MEDROXYPROGESTERONE ACETATE [Suspect]
     Dosage: 2.5 MG, UNK
     Route: 048
     Dates: start: 20051101
  2. ESTRACE [Concomitant]
     Indication: HORMONE REPLACEMENT THERAPY
     Dosage: 1 MG, 1X/DAY
     Route: 048

REACTIONS (1)
  - COELIAC DISEASE [None]
